FAERS Safety Report 13889437 (Version 4)
Quarter: 2017Q3

REPORT INFORMATION
  Report Type: Report from Study
  Country: US (occurrence: US)
  Receive Date: 20170822
  Receipt Date: 20170918
  Transmission Date: 20171127
  Serious: Yes (Death)
  Sender: FDA-Public Use
  Company Number: US-BIOGEN-2017BI00448426

PATIENT
  Age: 71 Year
  Sex: Female
  Weight: 133.93 kg

DRUGS (5)
  1. PRAVASTATIN. [Concomitant]
     Active Substance: PRAVASTATIN
     Indication: HYPERLIPIDAEMIA
     Route: 065
  2. LISINOPRIL. [Concomitant]
     Active Substance: LISINOPRIL
     Indication: HYPERTENSION
     Route: 065
  3. LEVOTHYROXINE. [Concomitant]
     Active Substance: LEVOTHYROXINE
     Indication: HYPOTHYROIDISM
     Route: 065
  4. OXYCODONE [Concomitant]
     Active Substance: OXYCODONE
     Indication: PRODUCT USED FOR UNKNOWN INDICATION
     Route: 065
  5. TECFIDERA [Suspect]
     Active Substance: DIMETHYL FUMARATE
     Indication: MULTIPLE SCLEROSIS
     Dosage: MAINTENANCE DOSE
     Route: 048
     Dates: start: 20161212

REACTIONS (2)
  - Multiple sclerosis [Fatal]
  - Respiratory arrest [Fatal]

NARRATIVE: CASE EVENT DATE: 20170814
